FAERS Safety Report 21153908 (Version 1)
Quarter: 2022Q3

REPORT INFORMATION
  Report Type: Report from Study
  Country: US (occurrence: US)
  Receive Date: 20220801
  Receipt Date: 20220801
  Transmission Date: 20221026
  Serious: No
  Sender: FDA-Public Use
  Company Number: US-NOVARTISTESTPH-NVSC2022US172969

PATIENT
  Sex: Female
  Weight: 127 kg

DRUGS (1)
  1. TREPROSTINIL [Suspect]
     Active Substance: TREPROSTINIL
     Indication: Pulmonary arterial hypertension
     Dosage: 61.5 NG/KG/MIN, CONT
     Route: 058
     Dates: start: 20211105

REACTIONS (1)
  - Pharyngitis [Unknown]
